FAERS Safety Report 4430247-X (Version None)
Quarter: 2004Q3

REPORT INFORMATION
  Report Type: 
  Country: None (occurrence: None)
  Receive Date: 20040820
  Receipt Date: 20040618
  Transmission Date: 20050211
  Serious: Yes (Disabling)
  Sender: FDA-Public Use
  Company Number: FR-GLAXOSMITHKLINE-B0336568B

PATIENT
  Sex: Male

DRUGS (4)
  1. COMBIVIR [Suspect]
     Indication: HIV INFECTION
     Dosage: 2TAB PER DAY
     Dates: start: 20031011
  2. SUSTIVA [Suspect]
     Indication: HIV INFECTION
     Dosage: 1UNIT PER DAY
     Dates: start: 20031011, end: 20040102
  3. KALETRA [Suspect]
     Indication: HIV INFECTION
     Dosage: 6UNIT PER DAY
     Dates: start: 20040129
  4. SUBUTEX [Suspect]
     Dosage: 2MG PER DAY

REACTIONS (4)
  - CEREBRAL VENTRICLE DILATATION [None]
  - DRUG EXPOSURE DURING PREGNANCY [None]
  - ECHOGRAPHY ABNORMAL [None]
  - GASTROINTESTINAL DISORDER [None]
